FAERS Safety Report 13775039 (Version 2)
Quarter: 2017Q3

REPORT INFORMATION
  Report Type: Report from Study
  Country: US (occurrence: US)
  Receive Date: 20170721
  Receipt Date: 20170818
  Transmission Date: 20171127
  Serious: Yes (Hospitalization, Other)
  Sender: FDA-Public Use
  Company Number: US-TAIHO ONCOLOGY INC-EU-2017-00999

PATIENT
  Age: 70 Year
  Sex: Male
  Weight: 80.6 kg

DRUGS (8)
  1. ACICLOVIR [Concomitant]
     Active Substance: ACYCLOVIR
     Dosage: NI
  2. DOXYCYCLINE. [Concomitant]
     Active Substance: DOXYCYCLINE
     Dosage: NI
  3. MORPHINE [Concomitant]
     Active Substance: MORPHINE
     Dosage: NI
  4. LONSURF [Suspect]
     Active Substance: TIPIRACIL HYDROCHLORIDE\TRIFLURIDINE
     Indication: COLORECTAL CANCER STAGE IV
     Dosage: CYCLE 2 STARTED 19JUN2017
     Route: 048
     Dates: start: 20170522, end: 201707
  5. HYDROCHLOROTHIAZIDE. [Concomitant]
     Active Substance: HYDROCHLOROTHIAZIDE
     Dosage: NI
  6. WARFARIN [Concomitant]
     Active Substance: WARFARIN
     Dosage: NI
  7. METOPROLOL. [Concomitant]
     Active Substance: METOPROLOL
     Dosage: NI
  8. POTASSIUM [Concomitant]
     Active Substance: POTASSIUM
     Dosage: NI

REACTIONS (16)
  - Fall [Recovered/Resolved]
  - Pyrexia [Recovering/Resolving]
  - Atrial fibrillation [Unknown]
  - Disorientation [Unknown]
  - Decreased appetite [Unknown]
  - Asthenia [Unknown]
  - Anaemia [Unknown]
  - Blood creatinine increased [Unknown]
  - Red blood cell count decreased [Recovering/Resolving]
  - White blood cell count decreased [Recovering/Resolving]
  - Cancer pain [Unknown]
  - Urinary tract infection [Unknown]
  - Fatigue [Unknown]
  - Haemoglobin decreased [Recovering/Resolving]
  - Disease progression [Unknown]
  - Retching [Unknown]

NARRATIVE: CASE EVENT DATE: 2017
